FAERS Safety Report 9436084 (Version 1)
Quarter: 2013Q3

REPORT INFORMATION
  Report Type: Report from Study
  Country: AU (occurrence: AU)
  Receive Date: 20130801
  Receipt Date: 20130801
  Transmission Date: 20140515
  Serious: Yes (Hospitalization, Other)
  Sender: FDA-Public Use
  Company Number: AU-ASTRAZENECA-2013SE42966

PATIENT
  Age: 74 Year
  Sex: Female

DRUGS (3)
  1. ARIMIDEX [Suspect]
     Indication: BREAST CANCER
     Route: 048
     Dates: start: 20110801, end: 20130517
  2. ISCOVER [Concomitant]
     Indication: BLOOD PRESSURE
  3. TRIASYN [Concomitant]
     Indication: BLOOD PRESSURE

REACTIONS (10)
  - Weight increased [Recovering/Resolving]
  - Hypokinesia [Unknown]
  - Hepatic pain [Recovering/Resolving]
  - Liver disorder [Recovering/Resolving]
  - Liver function test abnormal [Recovered/Resolved]
  - Lethargy [Not Recovered/Not Resolved]
  - Arthralgia [Recovering/Resolving]
  - Joint stiffness [Recovering/Resolving]
  - Mental disorder [Unknown]
  - C-reactive protein increased [Recovering/Resolving]
